FAERS Safety Report 6574139-9 (Version None)
Quarter: 2010Q1

REPORT INFORMATION
  Report Type: 
  Country: None (occurrence: None)
  Receive Date: 20100208
  Receipt Date: 20100129
  Transmission Date: 20100710
  Serious: Yes (Other)
  Sender: FDA-Public Use
  Company Number: US-ABBOTT-10P-163-0623147-00

PATIENT
  Sex: Female

DRUGS (2)
  1. HUMIRA [Suspect]
     Indication: RHEUMATOID ARTHRITIS
     Dates: start: 20080901, end: 20091101
  2. PREDNISONE TAB [Concomitant]
     Indication: RHEUMATOID ARTHRITIS
     Dosage: TAKES ANY WHERE FROM 2MG TO 10MG
     Dates: start: 20080101

REACTIONS (11)
  - ABDOMINAL PAIN UPPER [None]
  - BREAST MASS [None]
  - DIARRHOEA [None]
  - DIZZINESS [None]
  - FATIGUE [None]
  - HEADACHE [None]
  - LUNG DISORDER [None]
  - OVARIAN CYST [None]
  - PANCREATIC DISORDER [None]
  - TUBERCULOSIS TEST POSITIVE [None]
  - VOMITING [None]
